FAERS Safety Report 19192305 (Version 2)
Quarter: 2021Q2

REPORT INFORMATION
  Report Type: Spontaneous
  Country: PT (occurrence: PT)
  Receive Date: 20210428
  Receipt Date: 20210602
  Transmission Date: 20210717
  Serious: Yes (Other)
  Sender: FDA-Public Use
  Company Number: PT-REGENERON PHARMACEUTICALS, INC.-2020-75605

PATIENT

DRUGS (1)
  1. EYLEA [Suspect]
     Active Substance: AFLIBERCEPT
     Indication: DIABETIC RETINAL OEDEMA
     Dosage: 1 DF, ONCE, BOTH EYES
     Dates: start: 20200807, end: 20200807

REACTIONS (5)
  - Ocular discomfort [Recovering/Resolving]
  - Non-infectious endophthalmitis [Recovering/Resolving]
  - Vitreous floaters [Recovering/Resolving]
  - Blindness [Recovering/Resolving]
  - Vitreous opacities [Recovering/Resolving]

NARRATIVE: CASE EVENT DATE: 20200826
